FAERS Safety Report 5105717-1 (Version None)
Quarter: 2006Q3

REPORT INFORMATION
  Report Type: 
  Country: None (occurrence: None)
  Receive Date: 20060915
  Receipt Date: 20060829
  Transmission Date: 20061208
  Serious: Yes (Life-Threatening)
  Sender: FDA-Public Use
  Company Number: NL-SANOFI-SYNTHELABO-A01200607106

PATIENT
  Sex: Female
  Weight: 57 kg

DRUGS (8)
  1. MAGNESIUM SULFATE [Concomitant]
     Dosage: 1 G INTRAVENOUSLY
     Dates: start: 20060620, end: 20060828
  2. CALCIUM GLUCONATE [Concomitant]
     Dosage: 1 G INTRAVENOUSLY
     Route: 042
     Dates: start: 20060620, end: 20060828
  3. DEXAMETHASONE TAB [Concomitant]
     Dosage: 10 MG INTRAVENOUSLY
     Route: 042
     Dates: start: 20060620, end: 20060828
  4. ZOFRAN [Concomitant]
     Dosage: 8 MG INTRAVENOUSLY
     Route: 042
     Dates: start: 20060620, end: 20060828
  5. TAVEGIL [Concomitant]
     Dosage: 2 MG INTRAVENOUSLY
     Route: 042
     Dates: start: 20060620, end: 20060828
  6. FOLINIC ACID [Concomitant]
     Indication: COLON CANCER
     Dosage: 200 MG/M2 VIA INTRAVENOUS INFUSION
     Route: 042
     Dates: start: 20060828, end: 20060828
  7. ELOXATIN [Suspect]
     Indication: COLON CANCER
     Dosage: 110 MG INTRAVENOUSLY EVERY 2 WEEKS
     Route: 042
     Dates: start: 20060828, end: 20060828
  8. FLUOROURACIL [Concomitant]
     Indication: COLON CANCER
     Dosage: 1000 MG/ M2 VIA INTRAVENOUS INFUSION
     Route: 041
     Dates: start: 20060828, end: 20060829

REACTIONS (5)
  - ABDOMINAL PAIN [None]
  - DYSPNOEA [None]
  - EYE ROLLING [None]
  - FLUSHING [None]
  - LOSS OF CONSCIOUSNESS [None]
